FAERS Safety Report 12607415 (Version 1)
Quarter: 2016Q3

REPORT INFORMATION
  Report Type: Spontaneous
  Country: FR (occurrence: FR)
  Receive Date: 20160729
  Receipt Date: 20160729
  Transmission Date: 20161109
  Serious: Yes (Hospitalization)
  Sender: FDA-Public Use
  Company Number: FR-PFIZER INC-2016355830

PATIENT
  Age: 86 Year
  Sex: Male

DRUGS (7)
  1. MOVICOL [Concomitant]
     Active Substance: POLYETHYLENE GLYCOL 3350\POTASSIUM CHLORIDE\SODIUM BICARBONATE\SODIUM CHLORIDE
  2. DOLIPRANE [Concomitant]
     Active Substance: ACETAMINOPHEN
  3. ACIDE FOLIQUE [Concomitant]
     Active Substance: FOLIC ACID
  4. FRAGMINE [Suspect]
     Active Substance: DALTEPARIN SODIUM
     Indication: THROMBOSIS PROPHYLAXIS
     Dosage: 1 DF, 1X/DAY
     Route: 058
     Dates: start: 20160527, end: 20160602
  5. RISPERDAL [Concomitant]
     Active Substance: RISPERIDONE
  6. SERESTA [Concomitant]
     Active Substance: OXAZEPAM
  7. MEMANTINE MYLAN [Suspect]
     Active Substance: MEMANTINE
     Indication: DEMENTIA ALZHEIMER^S TYPE
     Dosage: 5 MG, 1X/DAY
     Route: 048
     Dates: start: 20160531, end: 20160603

REACTIONS (3)
  - Haematuria [Recovered/Resolved]
  - Citrobacter infection [Recovered/Resolved]
  - Cystitis [None]

NARRATIVE: CASE EVENT DATE: 20160602
